FAERS Safety Report 5369959-2 (Version None)
Quarter: 2007Q2

REPORT INFORMATION
  Report Type: 
  Country: None (occurrence: None)
  Receive Date: 20070620
  Receipt Date: 20070612
  Transmission Date: 20071010
  Serious: Yes (Death, Hospitalization)
  Sender: FDA-Public Use
  Company Number: WAES 0704SGP00002

PATIENT
  Age: 51 Year
  Sex: Female

DRUGS (7)
  1. VORINOSTAT [Suspect]
     Indication: BREAST CANCER METASTATIC
     Dosage: 400 MG/AM/PO
     Route: 048
     Dates: start: 20070322, end: 20070409
  2. METOCLOPRAMIDE [Concomitant]
  3. MORPHINE [Concomitant]
  4. POTASSIUM (UNSPECIFIED) [Concomitant]
  5. POTASSIUM CHLORIDE [Concomitant]
  6. SODIUM CHLORIDE [Concomitant]
  7. TOLBUTAMIDE [Concomitant]

REACTIONS (9)
  - ASCITES [None]
  - BODY TEMPERATURE INCREASED [None]
  - DEHYDRATION [None]
  - FATIGUE [None]
  - HYPOKALAEMIA [None]
  - OBSTRUCTION GASTRIC [None]
  - ORAL INTAKE REDUCED [None]
  - PLEURAL EFFUSION [None]
  - VOMITING [None]
